FAERS Safety Report 5726889-1 (Version None)
Quarter: 2008Q2

REPORT INFORMATION
  Report Type: 
  Country: None (occurrence: None)
  Receive Date: 20080502
  Receipt Date: 20080422
  Transmission Date: 20081010
  Serious: Yes (Hospitalization)
  Sender: FDA-Public Use
  Company Number: DE-PFIZER INC-2008036214

PATIENT
  Age: 68 Year
  Sex: Male

DRUGS (8)
  1. LONOLOX [Suspect]
     Indication: HYPERTENSION
     Route: 048
  2. BLOPRESS [Concomitant]
     Route: 048
  3. ALLOPURINOL [Concomitant]
     Route: 048
  4. GLIMEPIRIDE [Concomitant]
     Route: 048
  5. METOBETA [Concomitant]
     Route: 048
  6. FUROSEMIDE [Concomitant]
     Route: 048
  7. HYDROCHLOROTHIAZIDE [Concomitant]
     Route: 048
  8. ASPIRIN [Concomitant]
     Route: 048

REACTIONS (3)
  - FACE OEDEMA [None]
  - FLUID RETENTION [None]
  - RENAL FAILURE [None]
